FAERS Safety Report 7560677-9 (Version None)
Quarter: 2011Q2

REPORT INFORMATION
  Report Type: 
  Country: None (occurrence: None)
  Receive Date: 20110621
  Receipt Date: 20110329
  Transmission Date: 20111010
  Serious: Yes (Hospitalization)
  Sender: FDA-Public Use
  Company Number: AT-CEPHALON-2011003178

PATIENT
  Sex: Male
  Weight: 82 kg

DRUGS (7)
  1. THIAMAZOL [Concomitant]
     Dates: start: 20110302
  2. LORAZEPAM [Concomitant]
  3. TRAZODONE HCL [Concomitant]
     Dates: start: 20110127
  4. RITUXIMAB [Suspect]
     Route: 042
     Dates: start: 20101006, end: 20110329
  5. LAEVOLAC [Concomitant]
     Dates: start: 20101230
  6. LOVENOX [Concomitant]
  7. BENDAMUSTINE HCL [Suspect]
     Route: 042
     Dates: start: 20101007

REACTIONS (2)
  - PNEUMONIA [None]
  - PLEURISY [None]
